FAERS Safety Report 6945215-3 (Version None)
Quarter: 2010Q3

REPORT INFORMATION
  Report Type: 
  Country: None (occurrence: None)
  Receive Date: 20100827
  Receipt Date: 20100608
  Transmission Date: 20110219
  Serious: No
  Sender: FDA-Public Use
  Company Number: US-KINGPHARMUSA00001-K201000713

PATIENT
  Sex: Female
  Weight: 90.703 kg

DRUGS (5)
  1. FLECTOR [Suspect]
     Indication: ARTHRITIS
     Dosage: 1 PATCH, EVERY 12 HOURS
     Route: 061
     Dates: start: 20100607
  2. CARDIZEM [Concomitant]
  3. COREG [Concomitant]
  4. LISINOPRIL [Concomitant]
  5. PERCOCET [Concomitant]

REACTIONS (1)
  - APPLICATION SITE ERYTHEMA [None]
